FAERS Safety Report 6895385-0 (Version None)
Quarter: 2010Q3

REPORT INFORMATION
  Report Type: 
  Country: None (occurrence: None)
  Receive Date: 20100802
  Receipt Date: 20100722
  Transmission Date: 20110219
  Serious: Yes (Hospitalization)
  Sender: FDA-Public Use
  Company Number: US-PFIZER INC-2009202021

PATIENT
  Sex: Female
  Weight: 54 kg

DRUGS (15)
  1. SUNITINIB MALATE [Suspect]
     Indication: BREAST CANCER METASTATIC
     Dosage: 12.5 MG, 3X/DAY
     Route: 048
     Dates: start: 20090128, end: 20090324
  2. ACETYLSALICYLIC ACID [Concomitant]
     Dosage: UNK
     Route: 048
  3. HYDROCHLOROTHIAZIDE [Concomitant]
     Indication: HYPERTENSION
     Dosage: UNK
     Route: 048
     Dates: start: 20060529
  4. HYDROCHLOROTHIAZIDE [Concomitant]
     Dosage: 25 MG, 1X/DAY
     Route: 048
     Dates: start: 20090505
  5. LISINOPRIL [Concomitant]
     Indication: HYPERTENSION
     Dosage: UNK
     Route: 048
     Dates: start: 20060529
  6. LISINOPRIL [Concomitant]
     Dosage: 10 MG, 1X/DAY
     Route: 048
     Dates: start: 20090505
  7. METOPROLOL [Concomitant]
     Indication: HYPERTENSION
     Dosage: UNK
     Route: 048
  8. LOVAZA [Concomitant]
     Dosage: UNK
     Route: 048
  9. CALCIUM [Concomitant]
     Dosage: UNK
     Route: 048
  10. VITAMIN B6 [Concomitant]
     Dosage: UNK
     Route: 048
  11. POTASSIUM CHLORIDE [Concomitant]
     Dosage: UNK
     Route: 048
  12. ZOLOFT [Concomitant]
     Indication: DEPRESSION
     Dosage: UNK
     Route: 048
  13. OXYCODONE [Concomitant]
     Dosage: UNK
     Route: 048
  14. ZOFRAN [Concomitant]
     Dosage: UNK
     Route: 048
     Dates: start: 20090414
  15. TEMAZEPAM [Concomitant]
     Indication: INSOMNIA
     Dosage: UNK
     Route: 048
     Dates: start: 20080604

REACTIONS (2)
  - DEEP VEIN THROMBOSIS [None]
  - PLEURAL EFFUSION [None]
